FAERS Safety Report 9748643 (Version 1)
Quarter: 2013Q4

REPORT INFORMATION
  Report Type: Spontaneous
  Country: GB (occurrence: None)
  Receive Date: 20131209
  Receipt Date: 20131209
  Transmission Date: 20140711
  Serious: Yes (Other)
  Sender: FDA-Public Use
  Company Number: KAD201312-001579

PATIENT
  Age: 13 Year
  Sex: Female
  Weight: 56 kg

DRUGS (2)
  1. RIBAVIRIN (RIBAVIRIN) [Suspect]
     Indication: HEPATITIS C
     Route: 048
     Dates: start: 20131011
  2. VIRAFERONPEG (PEGINTERFERON ALFA-2B (RBE)) [Suspect]
     Indication: HEPATITIS C
     Route: 058
     Dates: start: 20131011

REACTIONS (9)
  - Decreased appetite [None]
  - Discomfort [None]
  - Drug dose omission [None]
  - Headache [None]
  - Incorrect dose administered [None]
  - Lethargy [None]
  - Device failure [None]
  - Product quality issue [None]
  - Pyrexia [None]
